FAERS Safety Report 9058779 (Version 1)
Quarter: 2013Q1

REPORT INFORMATION
  Report Type: Spontaneous
  Country: IE (occurrence: IE)
  Receive Date: 20130204
  Receipt Date: 20130204
  Transmission Date: 20140127
  Serious: Yes (Other)
  Sender: FDA-Public Use
  Company Number: PHHY2013IE006418

PATIENT
  Sex: Female

DRUGS (1)
  1. GILENYA [Suspect]
     Indication: MULTIPLE SCLEROSIS
     Dosage: 0.5 MG, QD
     Route: 048
     Dates: start: 20130108

REACTIONS (5)
  - Trigeminal neuralgia [Unknown]
  - Multiple sclerosis relapse [Unknown]
  - Mobility decreased [Unknown]
  - Fatigue [Unknown]
  - Gait disturbance [Unknown]
